FAERS Safety Report 4382327-5 (Version None)
Quarter: 2004Q2

REPORT INFORMATION
  Report Type: 
  Country: None (occurrence: None)
  Receive Date: 20040616
  Receipt Date: 20040607
  Transmission Date: 20050107
  Serious: Yes (Other)
  Sender: FDA-Public Use
  Company Number: HQWYE290107JUN04

PATIENT
  Sex: Female

DRUGS (1)
  1. SOMAC (PANTOPRAZOLE, TABLET, DELAYED RELEASE) [Suspect]
     Indication: ABDOMINAL PAIN UPPER
     Dosage: 40 MG 1X PER 1 DAY
     Route: 048
     Dates: start: 20040413

REACTIONS (3)
  - CONSTIPATION [None]
  - GASTRIC CANCER [None]
  - METASTASES TO LIVER [None]
